FAERS Safety Report 20546493 (Version 1)
Quarter: 2022Q1

REPORT INFORMATION
  Report Type: Spontaneous
  Country: US (occurrence: None)
  Receive Date: 20220302
  Receipt Date: 20220302
  Transmission Date: 20220423
  Serious: Yes (Other)
  Sender: FDA-Public Use
  Company Number: None

PATIENT
  Age: 47 Year
  Sex: Female
  Weight: 67.05 kg

DRUGS (1)
  1. ADVANCE WHITE EXTREME WHITENING TARTAR CONTROL [Suspect]
     Active Substance: SODIUM FLUORIDE
     Indication: Dental disorder prophylaxis
     Dosage: OTHER QUANTITY : 1 TUBE;?OTHER ROUTE : BRUSHED MY TEETH WITH IT;?
     Route: 050
     Dates: start: 20220228, end: 20220301

REACTIONS (1)
  - Angioedema [None]

NARRATIVE: CASE EVENT DATE: 20220301
